FAERS Safety Report 16519621 (Version 4)
Quarter: 2019Q3

REPORT INFORMATION
  Report Type: Spontaneous
  Country: JP (occurrence: JP)
  Receive Date: 20190702
  Receipt Date: 20190711
  Transmission Date: 20191004
  Serious: Yes (Hospitalization, Other)
  Sender: FDA-Public Use
  Company Number: PHJP2019JP007940

PATIENT
  Age: 67 Year
  Sex: Male

DRUGS (2)
  1. IXEKIZUMAB [Concomitant]
     Active Substance: IXEKIZUMAB
     Indication: PSORIASIS
     Dosage: UNK
     Route: 065
  2. CICLOSPORIN [Suspect]
     Active Substance: CYCLOSPORINE
     Indication: PSORIASIS
     Dosage: UNK
     Route: 048

REACTIONS (9)
  - Disease progression [Unknown]
  - Psoriasis [Unknown]
  - Pyrexia [Unknown]
  - Hypocalcaemia [Unknown]
  - Acute kidney injury [Unknown]
  - Rhabdomyolysis [Unknown]
  - Altered state of consciousness [Unknown]
  - Dyspnoea [Unknown]
  - Renal cancer [Recovering/Resolving]
